FAERS Safety Report 21802292 (Version 1)
Quarter: 2022Q4

REPORT INFORMATION
  Report Type: Report from Study
  Country: US (occurrence: US)
  Receive Date: 20221230
  Receipt Date: 20221230
  Transmission Date: 20230112
  Serious: No
  Sender: FDA-Public Use
  Company Number: US-ACORDA-ACO_173335_2022

PATIENT
  Age: 71 Year
  Sex: Female

DRUGS (5)
  1. INBRIJA [Suspect]
     Active Substance: LEVODOPA
     Indication: Parkinson^s disease
     Dosage: 2 DOSAGE FORM (84 MG), PRN (NOT TO EXCEED 5 DOSES A DAY)
  2. INBRIJA [Suspect]
     Active Substance: LEVODOPA
     Indication: On and off phenomenon
     Dosage: 2 DOSAGE FORM (84 MG), PRN (NOT TO EXCEED 5 DOSES A DAY)
  3. INBRIJA [Suspect]
     Active Substance: LEVODOPA
     Dosage: 2 DOSAGE FORM (84 MG), PRN (NOT TO EXCEED 5 DOSES A DAY)
  4. STALEVO [Concomitant]
     Active Substance: CARBIDOPA\ENTACAPONE\LEVODOPA
     Indication: Product used for unknown indication
     Dosage: 150 MILLIGRAM, QID
     Route: 065
  5. OTHER THERAPEUTIC PRODUCTS (Norazepole) [Concomitant]
     Indication: Product used for unknown indication
     Dosage: ONCE DAILY
     Route: 065

REACTIONS (3)
  - Drug effect less than expected [Unknown]
  - Device use issue [Unknown]
  - Expired product administered [Unknown]

NARRATIVE: CASE EVENT DATE: 20220809
